FAERS Safety Report 11489920 (Version 1)
Quarter: 2015Q3

REPORT INFORMATION
  Report Type: Spontaneous
  Country: US (occurrence: US)
  Receive Date: 20150910
  Receipt Date: 20150910
  Transmission Date: 20151125
  Serious: Yes (Other)
  Sender: FDA-Public Use
  Company Number: US-TEVA-592667ACC

PATIENT
  Sex: Female

DRUGS (1)
  1. TAKE ACTION [Suspect]
     Active Substance: LEVONORGESTREL
     Indication: POST COITAL CONTRACEPTION

REACTIONS (6)
  - Dizziness [Unknown]
  - Back pain [Unknown]
  - Kidney infection [Unknown]
  - Abdominal pain upper [Unknown]
  - Haematuria [Unknown]
  - Menstruation irregular [Unknown]
